FAERS Safety Report 4330689-7 (Version None)
Quarter: 2004Q1

REPORT INFORMATION
  Report Type: 
  Country: None (occurrence: None)
  Receive Date: 20040329
  Receipt Date: 20040310
  Transmission Date: 20041129
  Serious: Yes (Death, Hospitalization)
  Sender: FDA-Public Use
  Company Number: ATO-04-0226

PATIENT
  Age: 17 Year
  Sex: Female
  Weight: 77 kg

DRUGS (10)
  1. TRISENOX [Suspect]
     Indication: B-CELL LYMPHOMA
     Dosage: 0.20 MG/KG (0.2 MG/KG, DAYS 1-5 X 4WKS Q6WKS), IVI
     Route: 042
     Dates: start: 20040106, end: 20040126
  2. DEXAMETHASONE [Suspect]
  3. ALBUTEROL [Concomitant]
  4. GRANISETRON [Concomitant]
  5. ACYCLOVIR [Concomitant]
  6. RANITIDINE [Concomitant]
  7. MORPHINE [Concomitant]
  8. DIPHENHYDRAMINE HCL [Concomitant]
  9. SULFAMETHOXAZOLE + TRIMETHOPRIM [Concomitant]
  10. BISACODYL [Concomitant]

REACTIONS (20)
  - BLOOD POTASSIUM INCREASED [None]
  - BLOOD SODIUM DECREASED [None]
  - BLOOD URIC ACID INCREASED [None]
  - CARDIAC ARREST [None]
  - CIRCULATORY COLLAPSE [None]
  - CONSTIPATION [None]
  - DEPRESSED LEVEL OF CONSCIOUSNESS [None]
  - DIFFERENTIAL WHITE BLOOD CELL COUNT ABNORMAL [None]
  - DYSPEPSIA [None]
  - HAEMOGLOBIN DECREASED [None]
  - MALIGNANT NEOPLASM PROGRESSION [None]
  - METASTASES TO PANCREAS [None]
  - METASTASIS [None]
  - NEUTROPHIL PERCENTAGE INCREASED [None]
  - OEDEMA PERIPHERAL [None]
  - PAIN [None]
  - PANCREATITIS [None]
  - PLATELET COUNT DECREASED [None]
  - PULMONARY MASS [None]
  - RESPIRATORY DISTRESS [None]
